FAERS Safety Report 5262651-4 (Version None)
Quarter: 2007Q1

REPORT INFORMATION
  Report Type: 
  Country: None (occurrence: None)
  Receive Date: 20070312
  Receipt Date: 20070309
  Transmission Date: 20070707
  Serious: Yes (Hospitalization, Other)
  Sender: FDA-Public Use
  Company Number: TR-BRISTOL-MYERS SQUIBB COMPANY-13707328

PATIENT
  Age: 38 Year
  Sex: Male

DRUGS (2)
  1. LOMUSTINE [Suspect]
     Indication: ASTROCYTOMA
  2. RADIOTHERAPY [Concomitant]
     Indication: ASTROCYTOMA

REACTIONS (3)
  - FEBRILE NEUTROPENIA [None]
  - OVERDOSE [None]
  - THROMBOCYTOPENIA [None]
